FAERS Safety Report 18061376 (Version 2)
Quarter: 2021Q2

REPORT INFORMATION
  Report Type: Spontaneous
  Country: CA (occurrence: CA)
  Receive Date: 20200723
  Receipt Date: 20210628
  Transmission Date: 20210717
  Serious: Yes (Death, Hospitalization)
  Sender: FDA-Public Use
  Company Number: CA-TEVA-2020-CA-1803268

PATIENT
  Age: 84 Year
  Sex: Female
  Weight: 78.54 kg

DRUGS (21)
  1. JAMP?FERROUS GLUCONATE [Concomitant]
  2. ACETAMINOPHEN. [Concomitant]
     Active Substance: ACETAMINOPHEN
  3. VOLTAREN [Concomitant]
     Active Substance: DICLOFENAC SODIUM
  4. AMLODIPINE [Concomitant]
     Active Substance: AMLODIPINE BESYLATE
  5. APO?SALVENT CFC FREE [Concomitant]
  6. DIPHENHYDRAMINE. [Concomitant]
     Active Substance: DIPHENHYDRAMINE
  7. FUROSEMIDE. [Concomitant]
     Active Substance: FUROSEMIDE
  8. ASATAB 80 MG CHEWABLE TABLETS [Concomitant]
  9. CITALOPRAM [Concomitant]
     Active Substance: CITALOPRAM HYDROBROMIDE
  10. PMS?LACTULOSE SYR 667MG/ML [Concomitant]
  11. CLOTRIMAZOLE/HYDROCORTISONE CREAM [Concomitant]
  12. LEVETIRACETAM. [Suspect]
     Active Substance: LEVETIRACETAM
     Indication: SEIZURE
     Dosage: 1000 MILLIGRAM DAILY;
     Route: 048
  13. SOY PROTEIN [Concomitant]
     Active Substance: SOY PROTEIN
  14. RATIO?ECTOSONE [Concomitant]
     Active Substance: BETAMETHASONE VALERATE
  15. STATEX TAB 5MG [Concomitant]
     Active Substance: MORPHINE SULFATE
  16. OASIS NUTRITION L [Concomitant]
  17. SPIRIVA RESPIMAT [Concomitant]
     Active Substance: TIOTROPIUM BROMIDE
  18. ANUSOL OINTMENT 0.5% [Concomitant]
  19. IRBESARTAN. [Concomitant]
     Active Substance: IRBESARTAN
  20. SENNA TABS [Concomitant]
     Active Substance: SENNOSIDES A AND B
  21. VITAMIN D [Concomitant]
     Active Substance: VITAMIN D NOS

REACTIONS (6)
  - Cerebrovascular accident [Fatal]
  - Skin erosion [Fatal]
  - Blister [Fatal]
  - Pain [Fatal]
  - Blister rupture [Fatal]
  - Wound infection [Fatal]
